FAERS Safety Report 13158366 (Version 3)
Quarter: 2017Q3

REPORT INFORMATION
  Report Type: Spontaneous
  Country: US (occurrence: US)
  Receive Date: 20170127
  Receipt Date: 20170703
  Transmission Date: 20171127
  Serious: Yes (Other)
  Sender: FDA-Public Use
  Company Number: US-ROCHE-1883686

PATIENT
  Age: 67 Year
  Sex: Male

DRUGS (1)
  1. ALECENSA [Suspect]
     Active Substance: ALECTINIB HYDROCHLORIDE
     Indication: NON-SMALL CELL LUNG CANCER
     Dosage: 4-BID
     Route: 048
     Dates: start: 20160312

REACTIONS (14)
  - Dysphagia [Recovering/Resolving]
  - Hypoaesthesia [Unknown]
  - Insomnia [Unknown]
  - Metastases to central nervous system [Unknown]
  - Ill-defined disorder [Recovering/Resolving]
  - Muscular weakness [Unknown]
  - Drug ineffective [Unknown]
  - Sleep disorder [Recovering/Resolving]
  - Asthenia [Recovering/Resolving]
  - Abnormal behaviour [Recovering/Resolving]
  - Dysgraphia [Recovering/Resolving]
  - Decreased appetite [Recovering/Resolving]
  - Nausea [Recovering/Resolving]
  - Musculoskeletal pain [Recovering/Resolving]

NARRATIVE: CASE EVENT DATE: 201701
